FAERS Safety Report 21796350 (Version 1)
Quarter: 2022Q4

REPORT INFORMATION
  Report Type: Spontaneous
  Country: None (occurrence: US)
  Receive Date: 20221229
  Receipt Date: 20221229
  Transmission Date: 20230112
  Serious: Yes (Life-Threatening, Hospitalization)
  Sender: FDA-Public Use
  Company Number: US-Nostrum Laboratories, Inc.-2136279

PATIENT
  Age: 78 Year
  Sex: Male

DRUGS (1)
  1. DOXYCYCLINE HYCLATE [Suspect]
     Active Substance: DOXYCYCLINE HYCLATE
     Indication: Prostatitis
     Route: 048

REACTIONS (4)
  - Gastric ulcer haemorrhage [Recovered/Resolved]
  - Blood loss anaemia [Recovered/Resolved]
  - Shock haemorrhagic [Recovered/Resolved]
  - Pulmonary embolism [Recovered/Resolved]
